FAERS Safety Report 22995762 (Version 3)
Quarter: 2023Q4

REPORT INFORMATION
  Report Type: Report from Study
  Country: JP (occurrence: None)
  Receive Date: 20230927
  Receipt Date: 20231004
  Transmission Date: 20240110
  Serious: Yes (Hospitalization)
  Sender: FDA-Public Use
  Company Number: JP-Eisai Medical Research-EC-2023-149334

PATIENT
  Age: 62 Year
  Sex: Male
  Weight: 58.1 kg

DRUGS (12)
  1. LENVATINIB [Suspect]
     Active Substance: LENVATINIB
     Indication: Renal cell carcinoma
     Route: 048
     Dates: start: 20221201, end: 20230531
  2. LENVATINIB [Suspect]
     Active Substance: LENVATINIB
     Dosage: DOSE DECREASED
     Route: 048
     Dates: start: 20230615, end: 20230809
  3. LENVATINIB [Suspect]
     Active Substance: LENVATINIB
     Route: 048
     Dates: start: 20230907, end: 20230920
  4. BELZUTIFAN [Suspect]
     Active Substance: BELZUTIFAN
     Indication: Renal cell carcinoma
     Route: 048
     Dates: start: 20221201, end: 20230531
  5. BELZUTIFAN [Suspect]
     Active Substance: BELZUTIFAN
     Dosage: DOSE DECREASED
     Route: 048
     Dates: start: 20230615, end: 20230809
  6. BELZUTIFAN [Suspect]
     Active Substance: BELZUTIFAN
     Route: 048
     Dates: start: 20230907, end: 20230920
  7. DARBEPOETIN ALFA [Suspect]
     Active Substance: DARBEPOETIN ALFA
     Indication: Anaemia
     Route: 058
     Dates: start: 20230308, end: 20230712
  8. LEVOTHYROXINE SODIUM [Concomitant]
     Active Substance: LEVOTHYROXINE SODIUM
     Dates: start: 20230810
  9. CALCIUM CHLORIDE\POTASSIUM CHLORIDE\SODIUM ACETATE\SODIUM CHLORIDE [Concomitant]
     Active Substance: CALCIUM CHLORIDE\POTASSIUM CHLORIDE\SODIUM ACETATE\SODIUM CHLORIDE
     Dates: start: 20230920, end: 20230920
  10. XYLOCAINE [Concomitant]
     Active Substance: LIDOCAINE HYDROCHLORIDE
     Dates: start: 20230920, end: 20230920
  11. OXYGEN [Concomitant]
     Active Substance: OXYGEN
     Dates: start: 20230920, end: 20230920
  12. GLUCOSE OTSUKA [Concomitant]
     Route: 042
     Dates: start: 20230920, end: 20230920

REACTIONS (1)
  - Cholecystitis [Not Recovered/Not Resolved]

NARRATIVE: CASE EVENT DATE: 20230920
